FAERS Safety Report 11541485 (Version 3)
Quarter: 2015Q4

REPORT INFORMATION
  Report Type: Report from Study
  Country: US (occurrence: US)
  Receive Date: 20150923
  Receipt Date: 20151028
  Transmission Date: 20160304
  Serious: Yes (Other)
  Sender: FDA-Public Use
  Company Number: US-GILEAD-2015-0173710

PATIENT
  Age: 69 Year
  Sex: Male

DRUGS (1)
  1. IDELALISIB [Suspect]
     Active Substance: IDELALISIB
     Indication: NON-HODGKIN^S LYMPHOMA UNSPECIFIED HISTOLOGY INDOLENT
     Dosage: 150 MG, BID
     Route: 048
     Dates: start: 20150106, end: 201509

REACTIONS (11)
  - Pain [Unknown]
  - Squamous cell carcinoma [Unknown]
  - Hypophagia [Unknown]
  - Weight decreased [Unknown]
  - Gastrointestinal tube insertion [Unknown]
  - Fatigue [Unknown]
  - Oral disorder [Unknown]
  - Lymphadenopathy [Unknown]
  - Radiation skin injury [Unknown]
  - Pharyngeal disorder [Unknown]
  - VIIth nerve injury [Unknown]

NARRATIVE: CASE EVENT DATE: 201509
